FAERS Safety Report 10997748 (Version 1)
Quarter: 2015Q2

REPORT INFORMATION
  Report Type: Spontaneous
  Country: US (occurrence: US)
  Receive Date: 20150408
  Receipt Date: 20150408
  Transmission Date: 20150821
  Serious: No
  Sender: FDA-Public Use
  Company Number: US-BANPHARM-20143065

PATIENT
  Age: 43 Year
  Sex: Male
  Weight: 124.72 kg

DRUGS (3)
  1. NAPROXEN SODIUM 220 MG [Suspect]
     Active Substance: NAPROXEN SODIUM
     Indication: BACK PAIN
     Dosage: 440 MG, BID,
     Route: 048
     Dates: start: 20140902
  2. LISINOPRIL. [Concomitant]
     Active Substance: LISINOPRIL
  3. OMEPRAZOL [Concomitant]
     Active Substance: OMEPRAZOLE
     Dates: start: 2009

REACTIONS (3)
  - Fatigue [Unknown]
  - Incorrect dose administered [Unknown]
  - Somnolence [Unknown]
